FAERS Safety Report 4615908-1 (Version None)
Quarter: 2005Q1

REPORT INFORMATION
  Report Type: 
  Country: None (occurrence: None)
  Receive Date: 20050318
  Receipt Date: 20050302
  Transmission Date: 20050727
  Serious: Yes (Hospitalization)
  Sender: FDA-Public Use
  Company Number: 2005SE01280

PATIENT
  Age: 40 Year
  Sex: Female

DRUGS (2)
  1. SEROQUEL [Suspect]
     Indication: AGITATION
     Dosage: 100 MG BID PO
     Route: 048
     Dates: start: 20050110, end: 20050114
  2. STILNOCT [Concomitant]

REACTIONS (5)
  - ANGIONEUROTIC OEDEMA [None]
  - DISCOMFORT [None]
  - HYPERSENSITIVITY [None]
  - ORAL DISCOMFORT [None]
  - TONGUE DISORDER [None]
